FAERS Safety Report 14798534 (Version 1)
Quarter: 2018Q2

REPORT INFORMATION
  Report Type: Spontaneous
  Country: US (occurrence: US)
  Receive Date: 20180424
  Receipt Date: 20180424
  Transmission Date: 20180711
  Serious: Yes (Other)
  Sender: FDA-Public Use
  Company Number: US-TESARO, INC-US-2018TSO01940

PATIENT

DRUGS (2)
  1. ZEJULA [Suspect]
     Active Substance: NIRAPARIB
     Indication: OVARIAN CANCER
     Dosage: 300 MG, QD
     Route: 048
     Dates: start: 201707
  2. ZEJULA [Suspect]
     Active Substance: NIRAPARIB
     Dosage: 200 MG, QD
     Route: 048
     Dates: start: 201710

REACTIONS (7)
  - Blood count abnormal [Recovered/Resolved]
  - Tooth abscess [Recovering/Resolving]
  - Root canal infection [Recovering/Resolving]
  - Swelling [Recovering/Resolving]
  - Haemoglobin decreased [Recovered/Resolved]
  - Toothache [Recovered/Resolved]
  - Platelet count decreased [Recovered/Resolved]
